FAERS Safety Report 14449552 (Version 1)
Quarter: 2018Q1

REPORT INFORMATION
  Report Type: Spontaneous
  Country: JP (occurrence: JP)
  Receive Date: 20180127
  Receipt Date: 20180127
  Transmission Date: 20180509
  Serious: Yes (Hospitalization, Other)
  Sender: FDA-Public Use
  Company Number: JP-BRISTOL-MYERS SQUIBB COMPANY-BMS-2018-005669

PATIENT
  Sex: Male

DRUGS (1)
  1. YERVOY [Suspect]
     Active Substance: IPILIMUMAB
     Indication: MALIGNANT MELANOMA
     Dosage: UNK
     Route: 065

REACTIONS (5)
  - Uveitis [Unknown]
  - Decreased appetite [Unknown]
  - Hypoglycaemia [Unknown]
  - Adrenal insufficiency [Unknown]
  - Malaise [Unknown]

NARRATIVE: CASE EVENT DATE: 20180118
